FAERS Safety Report 19799653 (Version 1)
Quarter: 2021Q3

REPORT INFORMATION
  Report Type: Spontaneous
  Country: IN (occurrence: IN)
  Receive Date: 20210907
  Receipt Date: 20210907
  Transmission Date: 20211014
  Serious: Yes (Life-Threatening, Hospitalization)
  Sender: FDA-Public Use
  Company Number: IN-MYLANLABS-2021M1059706

PATIENT
  Age: 37 Year
  Sex: Male

DRUGS (2)
  1. ETOPOSIDE. [Suspect]
     Active Substance: ETOPOSIDE
     Indication: SEMINOMA
     Dosage: UNK, CYCLE
     Route: 065
  2. CISPLATIN. [Suspect]
     Active Substance: CISPLATIN
     Indication: SEMINOMA
     Dosage: UNK, CYCLE
     Route: 065

REACTIONS (4)
  - Tumour rupture [Recovered/Resolved]
  - Metastases to retroperitoneum [Recovered/Resolved]
  - Hypovolaemic shock [Recovered/Resolved]
  - Haemoperitoneum [Recovered/Resolved]
